FAERS Safety Report 14014457 (Version 1)
Quarter: 2017Q3

REPORT INFORMATION
  Report Type: Spontaneous
  Country: US (occurrence: US)
  Receive Date: 20170927
  Receipt Date: 20170927
  Transmission Date: 20171128
  Serious: Yes (Death)
  Sender: FDA-Public Use
  Company Number: US-BIOVITRUM-2017US0869

PATIENT
  Age: 67 Year
  Sex: Female

DRUGS (8)
  1. IMMUNOGLOBULIN (IMMUNOGLOBULIN HUMAN NORMAL) [Concomitant]
     Active Substance: HUMAN IMMUNOGLOBULIN G
     Indication: HISTIOCYTOSIS HAEMATOPHAGIC
  2. CYCLOSPORINE. [Concomitant]
     Active Substance: CYCLOSPORINE
     Indication: HISTIOCYTOSIS HAEMATOPHAGIC
  3. IMMUNOGLOBULIN (IMMUNOGLOBULIN HUMAN NORMAL) [Concomitant]
     Active Substance: HUMAN IMMUNOGLOBULIN G
     Indication: HISTIOCYTOSIS HAEMATOPHAGIC
     Dosage: 2 G/KG OVER 2 TO 4 DAYS
     Route: 042
  4. KINERET [Suspect]
     Active Substance: ANAKINRA
     Indication: HISTIOCYTOSIS HAEMATOPHAGIC
     Dosage: 100 MG SUBCUTANEOUS TWICE DAILY
     Route: 058
  5. STEROIDS [Concomitant]
     Active Substance: UNSPECIFIED INGREDIENT
     Indication: HISTIOCYTOSIS HAEMATOPHAGIC
     Dosage: STARTED AS INTRAVENOUS METHYLPREDNISONE 100 MG DAILY FOR 3 DAYS, OR DEXAMETHASONE 10 MG/M2 DAILY AS
  6. KINERET [Suspect]
     Active Substance: ANAKINRA
     Indication: HISTIOCYTOSIS HAEMATOPHAGIC
  7. CYCLOSPORINE. [Concomitant]
     Active Substance: CYCLOSPORINE
     Indication: HISTIOCYTOSIS HAEMATOPHAGIC
     Dosage: 1 MG/KG TWICE DAILY; TARGET TROUGH LEVEL = 200 MICROGRAM/ML BEFORE THE THIRD DOSE
  8. STEROIDS [Concomitant]
     Active Substance: UNSPECIFIED INGREDIENT
     Indication: HISTIOCYTOSIS HAEMATOPHAGIC

REACTIONS (1)
  - Death [Fatal]
